FAERS Safety Report 5888199-1 (Version None)
Quarter: 2008Q3

REPORT INFORMATION
  Report Type: 
  Country: None (occurrence: None)
  Receive Date: 20080918
  Receipt Date: 20080910
  Transmission Date: 20090109
  Serious: Yes (Hospitalization)
  Sender: FDA-Public Use
  Company Number: FR-ASTRAZENECA-2008CG01321

PATIENT
  Age: 24096 Day
  Sex: Male

DRUGS (18)
  1. MOPRAL [Suspect]
     Route: 048
  2. PREVISCAN [Suspect]
     Route: 048
     Dates: start: 20070201, end: 20070724
  3. CIPROFLOXACIN HYDROCHLORIDE [Suspect]
     Route: 048
     Dates: start: 20070724, end: 20070728
  4. ROCEPHIN [Suspect]
     Indication: PROPHYLAXIS
     Route: 042
     Dates: start: 20070722, end: 20070730
  5. AMIODARONE HCL [Suspect]
     Route: 048
  6. ALLOPURINOL [Suspect]
     Route: 048
  7. ASPIRIN [Suspect]
     Route: 048
  8. LEVOTHYROX [Suspect]
     Route: 048
     Dates: start: 20070128
  9. TAHOR [Suspect]
     Route: 048
  10. ATENOLOL [Concomitant]
  11. METFORMIN HCL [Concomitant]
  12. MOLSIDOMINE [Concomitant]
  13. MOVICOL [Concomitant]
  14. NEORAL [Concomitant]
  15. LANTUS [Concomitant]
  16. BURINEX [Concomitant]
  17. CELLCEPT [Concomitant]
  18. HYPERIUM [Concomitant]

REACTIONS (2)
  - ANAEMIA [None]
  - PERITONEAL HAEMORRHAGE [None]
